FAERS Safety Report 8976701 (Version 1)
Quarter: 2012Q4

REPORT INFORMATION
  Report Type: 
  Country: US (occurrence: US)
  Receive Date: 20121220
  Receipt Date: 20121220
  Transmission Date: 20130627
  Serious: Yes (Other)
  Sender: FDA-Public Use
  Company Number: US-BANPHARM-20120423

PATIENT
  Age: 59 Year
  Sex: Female
  Weight: 63.5 kg

DRUGS (5)
  1. ERGOCALCIFEROL [Suspect]
     Indication: VITAMIN D DECREASED
     Dosage: 1 DF, QW, Stopped in Aug2012 and restarted on unknown date
     Route: 048
     Dates: start: 201208, end: 20121206
  2. VICODIN [Concomitant]
     Indication: PAIN
     Dosage: PRN
  3. AMBIEN [Concomitant]
  4. IMITREX [Concomitant]
  5. RESTASIS [Concomitant]

REACTIONS (9)
  - Pruritus [Not Recovered/Not Resolved]
  - Urticaria [Not Recovered/Not Resolved]
  - Lip swelling [Recovered/Resolved]
  - Swollen tongue [Recovered/Resolved]
  - Skin discolouration [Recovering/Resolving]
  - Diarrhoea [Recovered/Resolved]
  - Chest pain [Recovered/Resolved]
  - Respiratory rate increased [Recovered/Resolved]
  - Migraine [Recovered/Resolved]
